FAERS Safety Report 17787151 (Version 1)
Quarter: 2020Q2

REPORT INFORMATION
  Report Type: Spontaneous
  Country: SK (occurrence: SK)
  Receive Date: 20200514
  Receipt Date: 20200514
  Transmission Date: 20200714
  Serious: Yes (Other)
  Sender: FDA-Public Use
  Company Number: SK-AMGEN-SVKSP2020073578

PATIENT
  Sex: Male

DRUGS (2)
  1. XGEVA [Suspect]
     Active Substance: DENOSUMAB
     Indication: PROSTATE CANCER METASTATIC
     Dosage: 120 MILLIGRAM, QMO
     Route: 065
  2. PROLIA [Suspect]
     Active Substance: DENOSUMAB
     Indication: PROSTATE CANCER METASTATIC
     Dosage: 60 MILLIGRAM, Q6MO
     Route: 065
     Dates: start: 201402

REACTIONS (4)
  - Blood test abnormal [Unknown]
  - Ureterolithiasis [Recovering/Resolving]
  - Off label use [Unknown]
  - Prostate cancer metastatic [Recovering/Resolving]
